FAERS Safety Report 25880256 (Version 2)
Quarter: 2025Q4

REPORT INFORMATION
  Report Type: Spontaneous
  Country: EU (occurrence: EU)
  Receive Date: 20251004
  Receipt Date: 20251020
  Transmission Date: 20260117
  Serious: Yes (Other)
  Sender: AVERITAS
  Company Number: EU-GRUNENTHAL-2025-122953

PATIENT
  Weight: 90 kg

DRUGS (5)
  1. QUTENZA [Suspect]
     Active Substance: CAPSAICIN
     Indication: Neuralgia
     Dosage: UNK
     Route: 003
     Dates: start: 20250626, end: 20250626
  2. QUTENZA [Suspect]
     Active Substance: CAPSAICIN
     Dosage: UNK
     Route: 003
     Dates: start: 20250922, end: 20250922
  3. QUTENZA [Suspect]
     Active Substance: CAPSAICIN
     Dosage: UNK
     Route: 003
     Dates: start: 20241018, end: 20241018
  4. QUTENZA [Suspect]
     Active Substance: CAPSAICIN
     Dosage: UNK
     Route: 003
     Dates: start: 20250109, end: 20250109
  5. QUTENZA [Suspect]
     Active Substance: CAPSAICIN
     Dosage: UNK
     Route: 003
     Dates: start: 20250325, end: 20250325

REACTIONS (5)
  - Cough [Recovering/Resolving]
  - Respiratory distress [Recovering/Resolving]
  - Cough [Unknown]
  - Throat irritation [Unknown]
  - Accidental exposure to product [Unknown]

NARRATIVE: CASE EVENT DATE: 20250626
